FAERS Safety Report 20762426 (Version 1)
Quarter: 2022Q2

REPORT INFORMATION
  Report Type: Spontaneous
  Country: CN (occurrence: None)
  Receive Date: 20220428
  Receipt Date: 20220428
  Transmission Date: 20220721
  Serious: Yes (Other)
  Sender: FDA-Public Use
  Company Number: CN-ROCHE-3084098

PATIENT
  Age: 67 Year
  Sex: Male

DRUGS (27)
  1. RITUXIMAB [Suspect]
     Active Substance: RITUXIMAB
     Indication: Diffuse large B-cell lymphoma
     Route: 065
     Dates: start: 201905
  2. OBINUTUZUMAB [Suspect]
     Active Substance: OBINUTUZUMAB
     Indication: Diffuse large B-cell lymphoma
     Route: 042
     Dates: start: 20220110
  3. OBINUTUZUMAB [Suspect]
     Active Substance: OBINUTUZUMAB
     Route: 042
     Dates: start: 20220110
  4. OBINUTUZUMAB [Suspect]
     Active Substance: OBINUTUZUMAB
     Route: 042
     Dates: start: 20220130
  5. OBINUTUZUMAB [Suspect]
     Active Substance: OBINUTUZUMAB
     Route: 042
     Dates: start: 20220224
  6. OBINUTUZUMAB [Suspect]
     Active Substance: OBINUTUZUMAB
     Route: 042
     Dates: start: 20220318
  7. OBINUTUZUMAB [Suspect]
     Active Substance: OBINUTUZUMAB
     Route: 042
     Dates: start: 20220415
  8. CYCLOPHOSPHAMIDE [Concomitant]
     Active Substance: CYCLOPHOSPHAMIDE
     Indication: Diffuse large B-cell lymphoma
     Dates: start: 201905
  9. DOXORUBICIN [Concomitant]
     Active Substance: DOXORUBICIN
     Indication: Diffuse large B-cell lymphoma
     Dates: start: 201905
  10. VINCRISTINE [Concomitant]
     Active Substance: VINCRISTINE
     Indication: Diffuse large B-cell lymphoma
     Dates: start: 201905
  11. VINCRISTINE [Concomitant]
     Active Substance: VINCRISTINE
     Dosage: METHOTREXATE + LENALIDOMIDE + ZANUBRUTINIB + VP (VINCRISTINE + PREDNISONE)
     Dates: start: 202103
  12. PREDNISONE [Concomitant]
     Active Substance: PREDNISONE
     Indication: Diffuse large B-cell lymphoma
     Dates: start: 201905
  13. PREDNISONE [Concomitant]
     Active Substance: PREDNISONE
     Dosage: METHOTREXATE + LENALIDOMIDE + ZANUBRUTINIB + VP (VINCRISTINE + PREDNISONE)
     Dates: start: 202103
  14. GEMCITABINE [Concomitant]
     Active Substance: GEMCITABINE
     Indication: Diffuse large B-cell lymphoma
     Dates: start: 20220110
  15. GEMCITABINE [Concomitant]
     Active Substance: GEMCITABINE
     Dates: start: 20220130
  16. GEMCITABINE [Concomitant]
     Active Substance: GEMCITABINE
     Dates: start: 20220224
  17. GEMCITABINE [Concomitant]
     Active Substance: GEMCITABINE
     Dates: start: 20220308
  18. GEMCITABINE [Concomitant]
     Active Substance: GEMCITABINE
     Dates: start: 20220415
  19. DEXAMETHASONE [Concomitant]
     Active Substance: DEXAMETHASONE
     Indication: Diffuse large B-cell lymphoma
     Dates: start: 20220110
  20. DEXAMETHASONE [Concomitant]
     Active Substance: DEXAMETHASONE
     Dates: start: 20220130
  21. DEXAMETHASONE [Concomitant]
     Active Substance: DEXAMETHASONE
     Dates: start: 20220224
  22. DEXAMETHASONE [Concomitant]
     Active Substance: DEXAMETHASONE
     Dates: start: 20220318
  23. DEXAMETHASONE [Concomitant]
     Active Substance: DEXAMETHASONE
     Dates: start: 20220415
  24. ZANUBRUTINIB [Concomitant]
     Active Substance: ZANUBRUTINIB
     Indication: Diffuse large B-cell lymphoma
     Dosage: METHOTREXATE + LENALIDOMIDE + ZANUBRUTINIB + VP (VINCRISTINE + PREDNISONE)
     Route: 048
     Dates: start: 202103
  25. METHOTREXATE [Concomitant]
     Active Substance: METHOTREXATE
     Indication: Diffuse large B-cell lymphoma
     Dosage: RITUXIMAB + METHOTREXATE + TEMOZOLOMIDE??METHOTREXATE + LENALIDOMIDE + ZANUBRUTINIB + VP (VINCRISTIN
  26. TEMOZOLOMIDE [Concomitant]
     Active Substance: TEMOZOLOMIDE
     Indication: Diffuse large B-cell lymphoma
     Dosage: RITUXIMAB + METHOTREXATE + TEMOZOLOMIDE
  27. LENALIDOMIDE [Concomitant]
     Active Substance: LENALIDOMIDE
     Indication: Diffuse large B-cell lymphoma
     Dosage: METHOTREXATE + LENALIDOMIDE + ZANUBRUTINIB + VP (VINCRISTINE + PREDNISONE)
     Dates: start: 202103

REACTIONS (4)
  - Rash [Unknown]
  - Myelosuppression [Unknown]
  - Renal impairment [Unknown]
  - Off label use [Unknown]
